FAERS Safety Report 9118401 (Version 1)
Quarter: 2013Q1

REPORT INFORMATION
  Report Type: Spontaneous
  Country: TR (occurrence: None)
  Receive Date: 20130128
  Receipt Date: 20130128
  Transmission Date: 20140127
  Serious: Yes (Life-Threatening)
  Sender: FDA-Public Use
  Company Number: FK201300120

PATIENT
  Age: 38 Year
  Sex: Female

DRUGS (3)
  1. PROPOFOL FRESENIUS [Suspect]
     Indication: INDUCTION OF ANAESTHESIA
     Dosage: 20 ML,  5 IN 1 D,  INTRAVENOUS (NOT OTHERWISE SPECIFIED)?10/27/2012  -  10/27/2012
     Route: 042
     Dates: start: 20121027, end: 20121027
  2. TENOXICAM [Suspect]
     Indication: PRODUCT USED FOR UNKNOWN INDICATION
     Dosage: ?10/27/2012  -  10/27/2012
     Dates: start: 20121027, end: 20121027
  3. RULID (ROXITHROMYCIN) [Concomitant]

REACTIONS (2)
  - Palmar erythema [None]
  - Rash pustular [None]
